FAERS Safety Report 4874502-8 (Version None)
Quarter: 2006Q1

REPORT INFORMATION
  Report Type: 
  Country: None (occurrence: None)
  Receive Date: 20060106
  Receipt Date: 20051227
  Transmission Date: 20060701
  Serious: Yes (Other)
  Sender: FDA-Public Use
  Company Number: PHHO2005CL20109

PATIENT
  Sex: Female

DRUGS (2)
  1. ZELMAC / HTF 919A [Suspect]
     Dosage: UNK, QD
     Route: 048
  2. EUTIROX [Concomitant]

REACTIONS (1)
  - HEPATITIS VIRAL [None]
